FAERS Safety Report 7234356-1 (Version None)
Quarter: 2011Q1

REPORT INFORMATION
  Report Type: 
  Country: None (occurrence: None)
  Receive Date: 20110119
  Receipt Date: 20110111
  Transmission Date: 20110831
  Serious: Yes (Other)
  Sender: FDA-Public Use
  Company Number: US-MPIJNJ-2011-00122

PATIENT
  Sex: Female

DRUGS (6)
  1. CYTOXAN [Suspect]
     Indication: MULTIPLE MYELOMA
     Dosage: UNK
     Dates: start: 20100921
  2. DEXAMETHASONE [Suspect]
     Indication: MULTIPLE MYELOMA
     Dosage: UNK
     Dates: start: 20090817, end: 20091229
  3. VELCADE [Suspect]
     Indication: MULTIPLE MYELOMA
     Dosage: UNK
     Dates: start: 20090817, end: 20101229
  4. REVLIMID [Suspect]
     Dosage: UNK
     Route: 048
     Dates: start: 20100921
  5. DEXAMETHASONE [Suspect]
     Dosage: UNK
     Dates: start: 20100921
  6. REVLIMID [Suspect]
     Indication: MULTIPLE MYELOMA
     Dosage: UNK
     Route: 048
     Dates: start: 20090817, end: 20101229

REACTIONS (4)
  - PLASMACYTOMA [None]
  - CARDIOMYOPATHY [None]
  - PANCYTOPENIA [None]
  - MULTIPLE MYELOMA [None]
